FAERS Safety Report 24770582 (Version 1)
Quarter: 2024Q4

REPORT INFORMATION
  Report Type: Spontaneous
  Country: CN (occurrence: CN)
  Receive Date: 20241224
  Receipt Date: 20241224
  Transmission Date: 20250115
  Serious: Yes (Other)
  Sender: RANBAXY
  Company Number: CN-SUN PHARMACEUTICAL INDUSTRIES LTD-2024R1-486200

PATIENT
  Age: 50 Year
  Sex: Male

DRUGS (21)
  1. ASPIRIN [Suspect]
     Active Substance: ASPIRIN
     Indication: Coronary artery disease
     Dosage: 100 MILLIGRAM, DAILY
     Route: 065
  2. ATORVASTATIN [Suspect]
     Active Substance: ATORVASTATIN
     Indication: Coronary artery disease
     Dosage: 20 MILLIGRAM, PRN
     Route: 048
  3. CLOPIDOGREL [Suspect]
     Active Substance: CLOPIDOGREL BISULFATE
     Indication: Coronary artery disease
     Dosage: 300 MILLIGRAM ST
     Route: 048
  4. DIAZEPAM [Suspect]
     Active Substance: DIAZEPAM
     Dosage: 5 MILLIGRAM, QD
     Route: 042
  5. DIAZEPAM [Suspect]
     Active Substance: DIAZEPAM
     Indication: Coronary artery disease
  6. DIAZEPAM [Suspect]
     Active Substance: DIAZEPAM
  7. METOPROLOL [Suspect]
     Active Substance: METOPROLOL
     Dosage: 23.75 MILLIGRAM, QD
     Route: 048
  8. METOPROLOL [Suspect]
     Active Substance: METOPROLOL
     Indication: Coronary artery disease
  9. METOPROLOL [Suspect]
     Active Substance: METOPROLOL
  10. MORPHINE [Suspect]
     Active Substance: MORPHINE
     Dosage: 5 MILLIGRAM, QD
     Route: 042
  11. MORPHINE [Suspect]
     Active Substance: MORPHINE
     Indication: Coronary artery disease
  12. MORPHINE [Suspect]
     Active Substance: MORPHINE
  13. NIFEDIPINE [Suspect]
     Active Substance: NIFEDIPINE
     Dosage: 30 MILLIGRAM, QD
     Route: 048
  14. NIFEDIPINE [Suspect]
     Active Substance: NIFEDIPINE
     Indication: Coronary artery disease
  15. NIFEDIPINE [Suspect]
     Active Substance: NIFEDIPINE
  16. ACETAMINOPHEN\OXYCODONE HYDROCHLORIDE [Suspect]
     Active Substance: ACETAMINOPHEN\OXYCODONE HYDROCHLORIDE
     Dosage: 5 MILLIGRAM, TID
     Route: 048
  17. ACETAMINOPHEN\OXYCODONE HYDROCHLORIDE [Suspect]
     Active Substance: ACETAMINOPHEN\OXYCODONE HYDROCHLORIDE
     Indication: Coronary artery disease
  18. ACETAMINOPHEN\OXYCODONE HYDROCHLORIDE [Suspect]
     Active Substance: ACETAMINOPHEN\OXYCODONE HYDROCHLORIDE
  19. TRAMADOL [Suspect]
     Active Substance: TRAMADOL
     Dosage: UNK 5% GLUCOSE INJECTION (40 ML)+TRAMADOL HYDROCHLORIDE INJECTION (400 MG)
     Route: 042
  20. TRAMADOL [Suspect]
     Active Substance: TRAMADOL
     Indication: Coronary artery disease
  21. TRAMADOL [Suspect]
     Active Substance: TRAMADOL

REACTIONS (1)
  - Priapism [Recovered/Resolved]
